FAERS Safety Report 24056373 (Version 1)
Quarter: 2024Q3

REPORT INFORMATION
  Report Type: Spontaneous
  Country: CN (occurrence: CN)
  Receive Date: 20240705
  Receipt Date: 20240705
  Transmission Date: 20241017
  Serious: Yes (Other)
  Sender: TAKEDA
  Company Number: CN-TAKEDA-2024TUS066909

PATIENT
  Age: 40 Year
  Sex: Male

DRUGS (1)
  1. FEBUXOSTAT [Suspect]
     Active Substance: FEBUXOSTAT
     Indication: Product used for unknown indication
     Dosage: UNK
     Route: 065
     Dates: start: 20220709, end: 20221229

REACTIONS (5)
  - COVID-19 pneumonia [Recovered/Resolved]
  - Blood uric acid decreased [Recovered/Resolved]
  - Hyperlipidaemia [Recovering/Resolving]
  - Urine osmolarity decreased [Not Recovered/Not Resolved]
  - Upper respiratory tract infection [Recovered/Resolved]

NARRATIVE: CASE EVENT DATE: 20220902
